FAERS Safety Report 8055217-4 (Version None)
Quarter: 2011Q4

REPORT INFORMATION
  Report Type: 
  Country: None (occurrence: None)
  Receive Date: 20111216
  Receipt Date: 20110926
  Transmission Date: 20120403
  Serious: Yes (Other)
  Sender: FDA-Public Use
  Company Number: 298514USA

PATIENT
  Age: 26 Year
  Sex: Female
  Weight: 62.5964 kg

DRUGS (4)
  1. LORATADINE [Concomitant]
  2. PARAGARD T 380A [Suspect]
     Indication: CONTRACEPTION
     Dosage: I.U.
     Dates: start: 20100422, end: 20110609
  3. BREVA [Concomitant]
  4. MONTELUKAST [Concomitant]

REACTIONS (2)
  - DRUG INEFFECTIVE [None]
  - ABORTION SPONTANEOUS [None]
